FAERS Safety Report 17204734 (Version 7)
Quarter: 2021Q2

REPORT INFORMATION
  Report Type: Report from Study
  Country: JP (occurrence: JP)
  Receive Date: 20191226
  Receipt Date: 20210423
  Transmission Date: 20210716
  Serious: Yes (Death, Hospitalization, Other)
  Sender: FDA-Public Use
  Company Number: JP-ALEXION PHARMACEUTICALS INC.-A201919899

PATIENT
  Age: 82 Year
  Sex: Male
  Weight: 51 kg

DRUGS (6)
  1. MIYA?BM [Concomitant]
     Active Substance: CLOSTRIDIUM BUTYRICUM SPORES STRAIN M-55
     Indication: FAECES SOFT
     Dosage: 1 G, TID
     Route: 048
     Dates: start: 20200620
  2. NAFTOPIDIL [Concomitant]
     Active Substance: NAFTOPIDIL
     Indication: BENIGN PROSTATIC HYPERPLASIA
     Dosage: 50 MG, QD
     Route: 048
     Dates: start: 20180815
  3. METHYCOBAL [Concomitant]
     Active Substance: METHYLCOBALAMIN
     Indication: NEUROPATHY PERIPHERAL
     Dosage: 500 ?G, TID
     Route: 048
     Dates: start: 20170719
  4. ULTOMIRIS [Suspect]
     Active Substance: RAVULIZUMAB-CWVZ
     Indication: PAROXYSMAL NOCTURNAL HAEMOGLOBINURIA
     Dosage: 2400 MG, SINGLE
     Route: 042
     Dates: start: 20191204, end: 20191204
  5. ULTOMIRIS [Suspect]
     Active Substance: RAVULIZUMAB-CWVZ
     Dosage: 3000 MG, Q8W
     Route: 042
     Dates: start: 20191218, end: 20210311
  6. DRUG NOT ADMINISTERED [Concomitant]
     Active Substance: UNSPECIFIED INGREDIENT
     Indication: ABDOMINAL DISTENSION
     Dosage: 2.5 G, TID
     Route: 048
     Dates: start: 20190925

REACTIONS (9)
  - Pneumonia acinetobacter [Fatal]
  - Calculus bladder [Recovered/Resolved]
  - Pneumonia [Recovered/Resolved]
  - Bronchitis [Recovered/Resolved]
  - Urinary tract infection [Recovered/Resolved]
  - Arthritis infective [Recovered/Resolved]
  - Sepsis [Recovered/Resolved]
  - Rectal haemorrhage [Recovered/Resolved]
  - Chronic gastritis [Not Recovered/Not Resolved]

NARRATIVE: CASE EVENT DATE: 20191208
